FAERS Safety Report 7085893-4 (Version None)
Quarter: 2010Q4

REPORT INFORMATION
  Report Type: 
  Country: None (occurrence: None)
  Receive Date: 20101007
  Receipt Date: 20100809
  Transmission Date: 20110411
  Serious: No
  Sender: FDA-Public Use
  Company Number: 2010IP000091

PATIENT
  Age: 33 Year
  Sex: Female
  Weight: 63.5036 kg

DRUGS (9)
  1. BEPREVE [Suspect]
     Indication: CONJUNCTIVITIS ALLERGIC
     Dosage: 1 GTT; BID; OPH
     Route: 047
     Dates: start: 20100528, end: 20100806
  2. FLUOXETINE [Concomitant]
  3. FLUTICASONE PROPIONATE [Concomitant]
  4. IRON [Concomitant]
  5. CALCIUM [Concomitant]
  6. OMEPRAZOLE [Concomitant]
  7. MULTI-VIT [Concomitant]
  8. LOESTRIN 1.5/30 [Concomitant]
  9. ZYRTEC [Concomitant]

REACTIONS (5)
  - CORNEAL INFILTRATES [None]
  - DRY EYE [None]
  - EYE IRRITATION [None]
  - KERATITIS [None]
  - OCULAR HYPERAEMIA [None]
